FAERS Safety Report 5607611-6 (Version None)
Quarter: 2008Q1

REPORT INFORMATION
  Report Type: 
  Country: None (occurrence: None)
  Receive Date: 20080130
  Receipt Date: 20080123
  Transmission Date: 20080703
  Serious: Yes (Hospitalization)
  Sender: FDA-Public Use
  Company Number: PHHO2008US01435

PATIENT
  Age: 36 Year
  Sex: Female
  Weight: 77.3 kg

DRUGS (1)
  1. AMN107 [Suspect]
     Indication: GASTROINTESTINAL STROMAL TUMOUR
     Dosage: 400 MG, BID
     Route: 048
     Dates: start: 20080114, end: 20080122

REACTIONS (5)
  - ASCITES [None]
  - BLOOD CREATININE INCREASED [None]
  - MALIGNANT NEOPLASM PROGRESSION [None]
  - PARACENTESIS [None]
  - RENAL FAILURE ACUTE [None]
